FAERS Safety Report 12747319 (Version 1)
Quarter: 2016Q3

REPORT INFORMATION
  Report Type: Report from Study
  Country: PL (occurrence: PL)
  Receive Date: 20160915
  Receipt Date: 20160915
  Transmission Date: 20161109
  Serious: Yes (Other)
  Sender: FDA-Public Use
  Company Number: PL-TEVA-692055ISR

PATIENT

DRUGS (3)
  1. PROPAFENON [Interacting]
     Active Substance: PROPAFENONE
  2. TIZANIDINE. [Suspect]
     Active Substance: TIZANIDINE
     Indication: PAIN
  3. AMIODARONE [Interacting]
     Active Substance: AMIODARONE

REACTIONS (2)
  - Bradycardia [Unknown]
  - Drug interaction [Unknown]
